FAERS Safety Report 10015379 (Version 3)
Quarter: 2015Q2

REPORT INFORMATION
  Report Type: Spontaneous
  Country: US (occurrence: US)
  Receive Date: 20140317
  Receipt Date: 20150612
  Transmission Date: 20150821
  Serious: Yes (Hospitalization, Disabling, Other)
  Sender: FDA-Public Use
  Company Number: US-SA-2014SA030008

PATIENT
  Age: 62 Year
  Sex: Male

DRUGS (25)
  1. METOPROLOL [Concomitant]
     Active Substance: METOPROLOL
     Route: 048
  2. DIGOXIN. [Concomitant]
     Active Substance: DIGOXIN
  3. AMIODARONE [Concomitant]
     Active Substance: AMIODARONE
  4. VITAMIN E [Concomitant]
     Active Substance: .ALPHA.-TOCOPHEROL
  5. COUMADIN [Concomitant]
     Active Substance: WARFARIN SODIUM
  6. COREG [Concomitant]
     Active Substance: CARVEDILOL
  7. PLAVIX [Suspect]
     Active Substance: CLOPIDOGREL BISULFATE
     Indication: STENT PLACEMENT
     Route: 048
     Dates: start: 200704, end: 20090407
  8. LIPITOR [Concomitant]
     Active Substance: ATORVASTATIN CALCIUM
  9. CIPRO [Concomitant]
     Active Substance: CIPROFLOXACIN HYDROCHLORIDE
     Route: 048
  10. MAALOX ANTACID [Concomitant]
     Active Substance: ALUMINUM HYDROXIDE\DIMETHICONE\MAGNESIUM HYDROXIDE
     Dosage: DOSE: 30 CC
     Route: 048
  11. INEXIUM [Concomitant]
     Active Substance: ESOMEPRAZOLE
     Route: 042
  12. AMARYL [Concomitant]
     Active Substance: GLIMEPIRIDE
  13. CALCIUM [Concomitant]
     Active Substance: CALCIUM
     Route: 048
  14. FERROUS SULFATE [Concomitant]
     Active Substance: FERROUS SULFATE\FERROUS SULFATE, DRIED
     Route: 048
  15. PIOGLITAZONE [Concomitant]
     Active Substance: PIOGLITAZONE
  16. METFORMIN [Concomitant]
     Active Substance: METFORMIN HYDROCHLORIDE
  17. NORVASC [Concomitant]
     Active Substance: AMLODIPINE BESYLATE
  18. AMLODIPINE [Concomitant]
     Active Substance: AMLODIPINE BESYLATE
     Route: 048
  19. VICODIN [Concomitant]
     Active Substance: ACETAMINOPHEN\HYDROCODONE BITARTRATE
  20. DIGITEK [Concomitant]
     Active Substance: DIGOXIN
  21. PROTONIX [Concomitant]
     Active Substance: PANTOPRAZOLE SODIUM
  22. ZOCOR [Concomitant]
     Active Substance: SIMVASTATIN
  23. VITAMINS NOS [Concomitant]
     Active Substance: VITAMINS
     Route: 048
  24. PLAVIX [Suspect]
     Active Substance: CLOPIDOGREL BISULFATE
     Indication: MYOCARDIAL INFARCTION
     Route: 048
     Dates: start: 200704, end: 20090407
  25. VITAMIN B12 [Concomitant]
     Active Substance: CYANOCOBALAMIN

REACTIONS (11)
  - Gastrointestinal haemorrhage [Unknown]
  - Physical disability [Not Recovered/Not Resolved]
  - Psychological trauma [Not Recovered/Not Resolved]
  - Economic problem [Not Recovered/Not Resolved]
  - Anhedonia [Not Recovered/Not Resolved]
  - Multiple injuries [Not Recovered/Not Resolved]
  - Pain [Not Recovered/Not Resolved]
  - Tension [Not Recovered/Not Resolved]
  - Deformity [Not Recovered/Not Resolved]
  - Social problem [Not Recovered/Not Resolved]
  - Loss of employment [Not Recovered/Not Resolved]

NARRATIVE: CASE EVENT DATE: 20080416
